FAERS Safety Report 9125234 (Version 2)
Quarter: 2013Q1

REPORT INFORMATION
  Report Type: Spontaneous
  Country: DE (occurrence: DE)
  Receive Date: 20130227
  Receipt Date: 20130305
  Transmission Date: 20140127
  Serious: No
  Sender: FDA-Public Use
  Company Number: PHHY2012DE120823

PATIENT
  Sex: Female
  Weight: 65 kg

DRUGS (4)
  1. EXTAVIA [Suspect]
     Indication: MULTIPLE SCLEROSIS
     Dosage: 1 ML, EVERY SECOND DAY
     Route: 058
     Dates: start: 20100901, end: 20121212
  2. EXTAVIA [Suspect]
     Dosage: 1 ML, EVERY SECOND DAY
     Route: 058
     Dates: start: 20130213
  3. MULTIVITAMINS [Concomitant]
     Dosage: UNK UKN, UNK
  4. FOLIC ACID [Concomitant]
     Dosage: 5 MG, UNK

REACTIONS (1)
  - Exposure during pregnancy [Unknown]
